FAERS Safety Report 15983893 (Version 1)
Quarter: 2019Q1

REPORT INFORMATION
  Report Type: Report from Study
  Country: None (occurrence: RO)
  Receive Date: 20190220
  Receipt Date: 20190220
  Transmission Date: 20190418
  Serious: Yes (Hospitalization)
  Sender: FDA-Public Use
  Company Number: RO-ABBVIE-19K-135-2668705-00

PATIENT
  Age: 62 Year
  Sex: Female

DRUGS (1)
  1. HUMIRA [Suspect]
     Active Substance: ADALIMUMAB
     Indication: RHEUMATOID ARTHRITIS
     Route: 058
     Dates: start: 20010515

REACTIONS (10)
  - Discoloured vomit [Not Recovered/Not Resolved]
  - Discoloured vomit [Recovered/Resolved]
  - Renal disorder [Not Recovered/Not Resolved]
  - Blood pressure increased [Not Recovered/Not Resolved]
  - Tremor [Not Recovered/Not Resolved]
  - Gallbladder disorder [Recovered/Resolved]
  - Cholelithiasis [Not Recovered/Not Resolved]
  - Gallbladder disorder [Not Recovered/Not Resolved]
  - Tremor [Recovered/Resolved]
  - Blood pressure increased [Recovered/Resolved]

NARRATIVE: CASE EVENT DATE: 201901
